FAERS Safety Report 5474090-1 (Version None)
Quarter: 2007Q3

REPORT INFORMATION
  Report Type: 
  Country: None (occurrence: None)
  Receive Date: 20070928
  Receipt Date: 20070928
  Transmission Date: 20080115
  Serious: Yes (Other)
  Sender: FDA-Public Use
  Company Number: None

PATIENT
  Sex: Female
  Weight: 53.0709 kg

DRUGS (1)
  1. INDERAL LA [Suspect]
     Indication: MIGRAINE
     Dosage: # 30 ONCE QD PO YEARS AGO
     Route: 048

REACTIONS (1)
  - DIZZINESS [None]
